FAERS Safety Report 17587507 (Version 4)
Quarter: 2021Q1

REPORT INFORMATION
  Report Type: Report from Study
  Country: US (occurrence: US)
  Receive Date: 20200326
  Receipt Date: 20210108
  Transmission Date: 20210419
  Serious: Yes (Other)
  Sender: FDA-Public Use
  Company Number: NVSC2020US083248

PATIENT
  Age: 50 Year
  Sex: Female

DRUGS (1)
  1. GILENYA [Suspect]
     Active Substance: FINGOLIMOD HYDROCHLORIDE
     Indication: MULTIPLE SCLEROSIS
     Dosage: 0.5 MG, QD
     Route: 048
     Dates: start: 20200227

REACTIONS (11)
  - Neck pain [Unknown]
  - Fatigue [Unknown]
  - Feeling abnormal [Unknown]
  - COVID-19 [Unknown]
  - Intervertebral disc protrusion [Unknown]
  - Anxiety [Unknown]
  - Headache [Unknown]
  - Nausea [Unknown]
  - Asthenia [Recovering/Resolving]
  - Pain in extremity [Unknown]
  - Dyspnoea [Unknown]

NARRATIVE: CASE EVENT DATE: 20200906
